FAERS Safety Report 4373746-1 (Version None)
Quarter: 2004Q2

REPORT INFORMATION
  Report Type: 
  Country: None (occurrence: None)
  Receive Date: 20040603
  Receipt Date: 20040521
  Transmission Date: 20050107
  Serious: Yes (Other)
  Sender: FDA-Public Use
  Company Number: GBS040514963

PATIENT
  Age: 62 Year
  Sex: Female

DRUGS (2)
  1. RALOXIFENE HCL [Suspect]
     Dates: start: 20021101
  2. MEDROXYPROGESTERONE [Concomitant]

REACTIONS (2)
  - POSTMENOPAUSAL HAEMORRHAGE [None]
  - SARCOMA UTERUS [None]
